FAERS Safety Report 9475158 (Version 1)
Quarter: 2013Q3

REPORT INFORMATION
  Report Type: Report from Study
  Country: CL (occurrence: CL)
  Receive Date: 20130824
  Receipt Date: 20130824
  Transmission Date: 20140515
  Serious: Yes (Hospitalization)
  Sender: FDA-Public Use
  Company Number: CL-ROCHE-1266189

PATIENT
  Age: 55 Year
  Sex: Female

DRUGS (2)
  1. XELODA [Suspect]
     Indication: BREAST CANCER
     Route: 048
     Dates: start: 20130805, end: 20130819
  2. AROMASIN [Suspect]
     Indication: BREAST CANCER
     Route: 042
     Dates: start: 201306, end: 20130805

REACTIONS (1)
  - Coma [Not Recovered/Not Resolved]
